FAERS Safety Report 6739160-6 (Version None)
Quarter: 2010Q2

REPORT INFORMATION
  Report Type: 
  Country: None (occurrence: None)
  Receive Date: 20100525
  Receipt Date: 20100517
  Transmission Date: 20101027
  Serious: Yes (Hospitalization, Other)
  Sender: FDA-Public Use
  Company Number: US-JNJFOC-20100400681

PATIENT
  Age: 54 Year
  Sex: Male
  Weight: 106.14 kg

DRUGS (15)
  1. RISPERDAL [Suspect]
     Indication: BIPOLAR DISORDER
     Route: 048
  2. RISPERDAL [Suspect]
     Dosage: 1-3MG/DAY
     Route: 048
  3. PLAVIX [Concomitant]
     Indication: CORONARY ARTERY DISEASE
     Dosage: SINCE CATH STENT
  4. TOPROL-XL [Concomitant]
     Indication: CORONARY ARTERY DISEASE
  5. PRAVACHOL [Concomitant]
     Indication: HYPERCHOLESTEROLAEMIA
  6. PRAVACHOL [Concomitant]
  7. ZOLOFT [Concomitant]
     Indication: MOOD SWINGS
  8. ZOLOFT [Concomitant]
     Indication: DEPRESSION
  9. ZETIA [Concomitant]
     Indication: HYPERCHOLESTEROLAEMIA
  10. LEVOTHYROXINE SODIUM [Concomitant]
     Indication: HYPOTHYROIDISM
  11. LEVOTHYROXINE SODIUM [Concomitant]
  12. GABAPENTIN [Concomitant]
     Indication: MOOD SWINGS
     Route: 065
  13. LOVAZA [Concomitant]
     Indication: CARDIAC DISORDER
     Dosage: RECENT TGM IV
     Route: 065
  14. TRAZODONE HCL [Concomitant]
     Indication: SLEEP DISORDER
     Route: 065
  15. UROXATRAL [Concomitant]
     Route: 065

REACTIONS (8)
  - CHEST PAIN [None]
  - CORONARY ARTERIAL STENT INSERTION [None]
  - CORONARY ARTERY DISEASE [None]
  - DEPRESSION [None]
  - DIABETES MELLITUS [None]
  - HYPERCHOLESTEROLAEMIA [None]
  - HYPOTHYROIDISM [None]
  - MICROALBUMINURIA [None]
